FAERS Safety Report 5442850-9 (Version None)
Quarter: 2007Q3

REPORT INFORMATION
  Report Type: 
  Country: None (occurrence: None)
  Receive Date: 20070830
  Receipt Date: 20070822
  Transmission Date: 20080115
  Serious: Yes (Death)
  Sender: FDA-Public Use
  Company Number: 2007-03902

PATIENT
  Age: 23 Year
  Sex: Male
  Weight: 55.3 kg

DRUGS (3)
  1. CYCLOBENZAPRINE HCL [Suspect]
     Indication: NECK INJURY
     Dosage: 10 MG, BID PRN X 1-2 WEEKS, ORAL
     Route: 048
     Dates: start: 20070101, end: 20070101
  2. NAPROXEN [Concomitant]
  3. LORTAB [Concomitant]

REACTIONS (4)
  - ARRHYTHMIA [None]
  - CARDIAC ARREST [None]
  - SUDDEN DEATH [None]
  - VENTRICULAR HYPERTROPHY [None]
